FAERS Safety Report 17183718 (Version 1)
Quarter: 2019Q4

REPORT INFORMATION
  Report Type: Spontaneous
  Country: CN (occurrence: CN)
  Receive Date: 20191220
  Receipt Date: 20191220
  Transmission Date: 20200122
  Serious: Yes (Other)
  Sender: FDA-Public Use
  Company Number: CN-PFIZER INC-2019541720

PATIENT
  Age: 14 Year
  Sex: Male
  Weight: 55 kg

DRUGS (3)
  1. SOLU-MEDROL [Suspect]
     Active Substance: METHYLPREDNISOLONE SODIUM SUCCINATE
     Indication: ANTIINFLAMMATORY THERAPY
  2. SOLU-MEDROL [Suspect]
     Active Substance: METHYLPREDNISOLONE SODIUM SUCCINATE
     Indication: OPTIC NERVE INJURY
     Dosage: 40 MG, 1X/DAY
     Route: 041
     Dates: start: 20191129, end: 20191210
  3. GLUCOSE [Concomitant]
     Active Substance: DEXTROSE
     Indication: VEHICLE SOLUTION USE
     Dosage: 500 ML, 1X/DAY
     Route: 041
     Dates: start: 20191129, end: 20191210

REACTIONS (2)
  - Tinea versicolour [Recovering/Resolving]
  - Folliculitis [Recovering/Resolving]

NARRATIVE: CASE EVENT DATE: 20191211
